FAERS Safety Report 9414198 (Version 1)
Quarter: 2013Q3

REPORT INFORMATION
  Report Type: Spontaneous
  Country: US (occurrence: US)
  Receive Date: 20130723
  Receipt Date: 20130723
  Transmission Date: 20140515
  Serious: No
  Sender: FDA-Public Use
  Company Number: US-PFIZER INC-2013211935

PATIENT
  Age: 57 Year
  Sex: Male
  Weight: 80 kg

DRUGS (2)
  1. VIAGRA [Suspect]
     Indication: ERECTILE DYSFUNCTION
     Dosage: 100 MG, SINGLE
     Dates: start: 20130614, end: 20130614
  2. NORCO [Concomitant]
     Indication: PAIN
     Dosage: HYDROCODONE BITARTRATE 20 MG/ PARACETAMOL 650 MG, 4X/DAY

REACTIONS (1)
  - Somnolence [Unknown]
